FAERS Safety Report 17154683 (Version 1)
Quarter: 2019Q4

REPORT INFORMATION
  Report Type: Spontaneous
  Country: KR (occurrence: KR)
  Receive Date: 20191214
  Receipt Date: 20191214
  Transmission Date: 20200122
  Serious: Yes (Hospitalization, Other)
  Sender: FDA-Public Use
  Company Number: KR-AMGEN-KORSP2019207916

PATIENT
  Age: 3 Year
  Sex: Female

DRUGS (1)
  1. KRN125 [Suspect]
     Active Substance: FILGRASTIM
     Indication: NEUTROPENIA
     Dosage: 1 SYRINGE* 1
     Route: 042

REACTIONS (2)
  - Anaphylactic reaction [Recovered/Resolved]
  - Incorrect route of product administration [Unknown]
